FAERS Safety Report 23118696 (Version 2)
Quarter: 2024Q1

REPORT INFORMATION
  Report Type: Report from Study
  Country: US (occurrence: US)
  Receive Date: 20231028
  Receipt Date: 20240102
  Transmission Date: 20240410
  Serious: Yes (Hospitalization)
  Sender: FDA-Public Use
  Company Number: US-JNJFOC-20231050176

PATIENT
  Sex: Female

DRUGS (5)
  1. SPRAVATO [Suspect]
     Active Substance: ESKETAMINE
     Indication: Depression
     Dosage: 84MG, 1 TOTAL DOSES
     Dates: start: 20211223, end: 20211223
  2. SPRAVATO [Suspect]
     Active Substance: ESKETAMINE
     Dosage: 72 (UNITS UNSPECIFIED)
     Dates: start: 20211228, end: 20211228
  3. SPRAVATO [Suspect]
     Active Substance: ESKETAMINE
     Dosage: 84 MG, 33 TOTAL DOSES
     Dates: start: 20211230, end: 20221227
  4. BUPROPION [Concomitant]
     Active Substance: BUPROPION
     Indication: Depression
     Route: 065
     Dates: start: 202112
  5. LAMOTRIGINE [Concomitant]
     Active Substance: LAMOTRIGINE
     Indication: Bipolar disorder
     Route: 065
     Dates: start: 202112

REACTIONS (2)
  - Blindness transient [Recovered/Resolved]
  - Eye haemorrhage [Unknown]
